FAERS Safety Report 5867192-9 (Version None)
Quarter: 2008Q3

REPORT INFORMATION
  Report Type: 
  Country: None (occurrence: None)
  Receive Date: 20080829
  Receipt Date: 20080829
  Transmission Date: 20090109
  Serious: Yes (Life-Threatening)
  Sender: FDA-Public Use
  Company Number: None

PATIENT
  Age: 30 Year
  Sex: Male
  Weight: 127.0072 kg

DRUGS (1)
  1. ZEGERID NORWICH PHARMACEUTICALS [Suspect]
     Dosage: 40 MG TABLETS 1100 MG BOTTLE PO, IMMEADIATE AFTER INTAKE
     Route: 048

REACTIONS (1)
  - VOMITING [None]
